FAERS Safety Report 16785353 (Version 1)
Quarter: 2019Q3

REPORT INFORMATION
  Report Type: Spontaneous
  Country: DE (occurrence: DE)
  Receive Date: 20190909
  Receipt Date: 20190909
  Transmission Date: 20191005
  Serious: Yes (Other)
  Sender: FDA-Public Use
  Company Number: DE-GLAXOSMITHKLINE-DE2019EME160794

PATIENT

DRUGS (1)
  1. BENLYSTA [Suspect]
     Active Substance: BELIMUMAB
     Indication: SYSTEMIC LUPUS ERYTHEMATOSUS
     Dosage: UNK
     Route: 058

REACTIONS (4)
  - Discomfort [Unknown]
  - Respiratory distress [Unknown]
  - Systemic lupus erythematosus [Unknown]
  - Sleep disorder due to a general medical condition [Unknown]
